FAERS Safety Report 25777428 (Version 2)
Quarter: 2025Q3

REPORT INFORMATION
  Report Type: Report from Study
  Country: GB (occurrence: GB)
  Receive Date: 20250909
  Receipt Date: 20250912
  Transmission Date: 20251020
  Serious: Yes (Hospitalization, Other)
  Sender: ABBVIE
  Company Number: GB-ABBVIE-6445680

PATIENT
  Sex: Male

DRUGS (1)
  1. SKYRIZI [Suspect]
     Active Substance: RISANKIZUMAB-RZAA
     Indication: Psoriasis
     Dosage: FORM STRENGTH: 150MG/1ML,
     Route: 058
     Dates: start: 202209

REACTIONS (5)
  - Chest pain [Unknown]
  - Pleural effusion [Unknown]
  - Hernia [Unknown]
  - Implantable defibrillator insertion [Unknown]
  - Gastrointestinal disorder [Unknown]
